FAERS Safety Report 17672501 (Version 1)
Quarter: 2020Q2

REPORT INFORMATION
  Report Type: Spontaneous
  Country: CN (occurrence: CN)
  Receive Date: 20200415
  Receipt Date: 20200415
  Transmission Date: 20200713
  Serious: Yes (Other)
  Sender: FDA-Public Use
  Company Number: CN-ABBVIE-20K-035-3361300-00

PATIENT
  Age: 43 Year
  Sex: Male

DRUGS (3)
  1. CALCIJEX [Suspect]
     Active Substance: CALCITRIOL
     Route: 042
     Dates: start: 20200222, end: 20200407
  2. CALCIJEX [Suspect]
     Active Substance: CALCITRIOL
     Indication: HYPOCALCAEMIA
     Route: 042
     Dates: start: 20200208, end: 20200218
  3. ENOXAPARIN SODIUM. [Concomitant]
     Active Substance: ENOXAPARIN SODIUM
     Indication: HAEMODIALYSIS
     Route: 010

REACTIONS (3)
  - Pain in extremity [Recovering/Resolving]
  - Seizure [Recovering/Resolving]
  - Insomnia [Recovering/Resolving]

NARRATIVE: CASE EVENT DATE: 20200218
